FAERS Safety Report 9306529 (Version 4)
Quarter: 2013Q3

REPORT INFORMATION
  Report Type: Spontaneous
  Country: US (occurrence: US)
  Receive Date: 20130523
  Receipt Date: 20130730
  Transmission Date: 20140515
  Serious: Yes (Hospitalization, Other)
  Sender: FDA-Public Use
  Company Number: US-AMGEN-USASP2013036020

PATIENT
  Age: 75 Year
  Sex: Female
  Weight: 72.56 kg

DRUGS (13)
  1. PROCRIT [Suspect]
     Indication: NEPHROGENIC ANAEMIA
     Dosage: 40000 UNK, EVERY OTHER WEEK
     Dates: start: 200306, end: 20091227
  2. ARANESP [Suspect]
     Indication: NEPHROGENIC ANAEMIA
     Dosage: 100 UNK, QW
     Route: 065
  3. METOPROLOL [Concomitant]
     Dosage: 25 MG, BID
  4. LOVASTATIN [Concomitant]
     Indication: BLOOD CHOLESTEROL ABNORMAL
     Dosage: 40 MG, BID
  5. FUROSEMIDE [Concomitant]
     Dosage: 20 MG, QD
  6. ASPIRIN [Concomitant]
     Dosage: UNK UNK, QD
     Route: 048
  7. B12                                /00056202/ [Concomitant]
     Dosage: UNK
     Route: 048
  8. FOLIC ACID [Concomitant]
     Dosage: UNK
     Route: 048
  9. B6 [Concomitant]
     Dosage: UNK
     Route: 048
  10. VITAMIN A                          /00056001/ [Concomitant]
     Dosage: UNK
     Route: 048
  11. EQUATE                             /00002701/ [Concomitant]
     Indication: HYPERSENSITIVITY
     Dosage: UNK
     Route: 048
  12. MECLIZINE                          /00072801/ [Concomitant]
     Indication: VERTIGO
     Dosage: 25 MG, AS NECESSARY THREE TIMES DAILY
     Route: 048
  13. COLCRYS [Concomitant]
     Indication: GOUT
     Dosage: 0.6 MG, QD
     Route: 048

REACTIONS (12)
  - Appendicectomy [Unknown]
  - Pneumonia [Unknown]
  - Haemoglobin decreased [Not Recovered/Not Resolved]
  - Haematocrit decreased [Not Recovered/Not Resolved]
  - Red blood cell count decreased [Not Recovered/Not Resolved]
  - Dyspnoea [Not Recovered/Not Resolved]
  - Mobility decreased [Not Recovered/Not Resolved]
  - Lung disorder [Unknown]
  - Cardiac disorder [Unknown]
  - Emphysema [Unknown]
  - General physical health deterioration [Not Recovered/Not Resolved]
  - Weight increased [Not Recovered/Not Resolved]
